FAERS Safety Report 5907169-8 (Version None)
Quarter: 2008Q4

REPORT INFORMATION
  Report Type: 
  Country: None (occurrence: None)
  Receive Date: 20081003
  Receipt Date: 20080924
  Transmission Date: 20090506
  Serious: Yes (Other)
  Sender: FDA-Public Use
  Company Number: US-JNJFOC-20080906195

PATIENT
  Sex: Female
  Weight: 48.08 kg

DRUGS (6)
  1. DURAGESIC-100 [Suspect]
     Route: 062
  2. DURAGESIC-100 [Suspect]
     Indication: PAIN
     Route: 062
  3. FENTANYL TRANSDERMAL SYSTEM [Suspect]
     Indication: PAIN
     Route: 062
  4. NEURONTIN [Concomitant]
     Indication: NEURALGIA
     Route: 048
  5. WELLBUTRIN [Concomitant]
     Indication: DEPRESSION
     Route: 048
  6. ZOLOFT [Concomitant]
     Indication: DEPRESSION
     Route: 048

REACTIONS (9)
  - ANGINA PECTORIS [None]
  - ARTHRITIS [None]
  - ASTHMA [None]
  - BLOOD CHOLESTEROL INCREASED [None]
  - BREAST CANCER [None]
  - GASTROOESOPHAGEAL REFLUX DISEASE [None]
  - PAIN [None]
  - THERAPEUTIC RESPONSE UNEXPECTED WITH DRUG SUBSTITUTION [None]
  - WITHDRAWAL SYNDROME [None]
